FAERS Safety Report 23469007 (Version 1)
Quarter: 2024Q1

REPORT INFORMATION
  Report Type: Spontaneous
  Country: PT (occurrence: None)
  Receive Date: 20240202
  Receipt Date: 20240202
  Transmission Date: 20240410
  Serious: Yes (Death, Other)
  Sender: FDA-Public Use
  Company Number: PT-ADIENNEP-2024AD000077

PATIENT
  Sex: Female

DRUGS (4)
  1. THIOTEPA [Suspect]
     Active Substance: THIOTEPA
     Indication: Chemotherapy
     Dosage: FOUR CYCLES, WITH EACH CYCLE ADMINISTERED EVERY THREE WEEKS ()
  2. METHOTREXATE [Suspect]
     Active Substance: METHOTREXATE
     Indication: Chemotherapy
     Dosage: FOUR CYCLES, WITH EACH CYCLE ADMINISTERED EVERY THREE WEEKS ()
  3. CYTARABINE [Suspect]
     Active Substance: CYTARABINE
     Indication: Chemotherapy
     Dosage: FOUR CYCLES, WITH EACH CYCLE ADMINISTERED EVERY THREE WEEKS ()
  4. RITUXIMAB [Suspect]
     Active Substance: RITUXIMAB
     Indication: Chemotherapy
     Dosage: FOUR CYCLES, WITH EACH CYCLE ADMINISTERED EVERY THREE WEEKS ()

REACTIONS (1)
  - Sepsis [Fatal]
